FAERS Safety Report 12403850 (Version 1)
Quarter: 2016Q2

REPORT INFORMATION
  Report Type: Spontaneous
  Country: TW (occurrence: TW)
  Receive Date: 20160525
  Receipt Date: 20160525
  Transmission Date: 20160815
  Serious: Yes (Hospitalization)
  Sender: FDA-Public Use
  Company Number: TW-SA-2016SA096422

PATIENT
  Age: 8 Year
  Sex: Male

DRUGS (11)
  1. CLAFORAN [Suspect]
     Active Substance: CEFOTAXIME SODIUM
     Indication: INFECTION
     Dosage: DOSAGE FORM:VIAL
     Route: 042
     Dates: start: 20160503, end: 20160506
  2. CLAFORAN [Suspect]
     Active Substance: CEFOTAXIME SODIUM
     Indication: TUBERCULOSIS
     Dosage: DOSAGE FORM:VIAL
     Route: 042
     Dates: start: 20160503, end: 20160506
  3. AXOL [Concomitant]
     Indication: PRODUCTIVE COUGH
     Dosage: STRENGTH: 30 MG
     Dates: start: 20160502, end: 20160504
  4. PARAN [Concomitant]
     Indication: PYREXIA
     Dosage: DOSE: 0.75
     Dates: start: 20160502, end: 20160504
  5. PARAN [Concomitant]
     Indication: PAIN
     Dosage: DOSE: 0.75
     Dates: start: 20160502, end: 20160504
  6. MEPTIN [Concomitant]
     Active Substance: PROCATEROL HYDROCHLORIDE
     Indication: BRONCHIAL DISORDER
     Dates: start: 20160504
  7. CHLORPHENIRAMINE. [Concomitant]
     Active Substance: CHLORPHENIRAMINE
     Indication: HYPERSENSITIVITY
     Dosage: STREMGTH: 4 MG
     Dates: start: 20160502, end: 20160504
  8. VOREN [Concomitant]
     Active Substance: DICLOFENAC
     Indication: PYREXIA
     Dosage: STRENGTH: 50 MG
     Dates: start: 20160502, end: 20160505
  9. VOREN [Concomitant]
     Active Substance: DICLOFENAC
     Indication: PAIN
     Dosage: STRENGTH: 50 MG
     Dates: start: 20160502, end: 20160505
  10. MEPTIN [Concomitant]
     Active Substance: PROCATEROL HYDROCHLORIDE
     Indication: BRONCHIAL DISORDER
     Dosage: STRENGTH: 25 MCG?FREQUENCY: QN
     Dates: start: 20160502, end: 20160504
  11. PEICHIA [Concomitant]
     Indication: GASTROINTESTINAL DISORDER
     Dates: start: 20160502, end: 20160504

REACTIONS (4)
  - Pruritus generalised [Recovering/Resolving]
  - Rash generalised [Recovering/Resolving]
  - Drug hypersensitivity [Recovering/Resolving]
  - Eczema [Recovering/Resolving]

NARRATIVE: CASE EVENT DATE: 201605
